FAERS Safety Report 13241555 (Version 1)
Quarter: 2017Q1

REPORT INFORMATION
  Report Type: Spontaneous
  Country: US (occurrence: US)
  Receive Date: 20170216
  Receipt Date: 20170216
  Transmission Date: 20170428
  Serious: Yes (Hospitalization)
  Sender: FDA-Public Use
  Company Number: None

PATIENT
  Age: 53 Year
  Sex: Male
  Weight: 93.2 kg

DRUGS (4)
  1. NATALIZUMAB 300MG BIOGEN IDEC, INC [Suspect]
     Active Substance: NATALIZUMAB
     Indication: ACUTE GRAFT VERSUS HOST DISEASE
     Dosage: 300 MG TWICE IV
     Route: 042
     Dates: start: 20170119, end: 20170203
  2. CIDOFOVIR. [Concomitant]
     Active Substance: CIDOFOVIR
  3. DILAUDID [Concomitant]
     Active Substance: HYDROMORPHONE HYDROCHLORIDE
  4. OXYBUTYNIN [Concomitant]
     Active Substance: OXYBUTYNIN

REACTIONS (5)
  - Dysuria [None]
  - BK virus infection [None]
  - Pollakiuria [None]
  - Cystitis viral [None]
  - Haematuria [None]

NARRATIVE: CASE EVENT DATE: 20170209
